FAERS Safety Report 4508749-7 (Version None)
Quarter: 2004Q4

REPORT INFORMATION
  Report Type: 
  Country: None (occurrence: None)
  Receive Date: 20041123
  Receipt Date: 20040707
  Transmission Date: 20050328
  Serious: No
  Sender: FDA-Public Use
  Company Number: US-GLAXOSMITHKLINE-A0517267A

PATIENT
  Age: 55 Year
  Sex: Female

DRUGS (3)
  1. WELLBUTRIN SR [Suspect]
     Dosage: 150MG PER DAY
     Route: 048
     Dates: start: 20040201
  2. NIACIN [Concomitant]
  3. LIPITOR [Concomitant]

REACTIONS (2)
  - ANXIETY [None]
  - DRY MOUTH [None]
